FAERS Safety Report 16760322 (Version 1)
Quarter: 2019Q3

REPORT INFORMATION
  Report Type: Spontaneous
  Country: US (occurrence: US)
  Receive Date: 20190830
  Receipt Date: 20190830
  Transmission Date: 20191005
  Serious: No
  Sender: FDA-Public Use
  Company Number: US-PFIZER INC-2019237395

PATIENT
  Age: 68 Year
  Sex: Female
  Weight: 90.72 kg

DRUGS (2)
  1. LYRICA [Suspect]
     Active Substance: PREGABALIN
     Indication: LABYRINTHITIS
     Dosage: 50 MG, 3X/DAY
     Dates: start: 20190531
  2. LYRICA [Suspect]
     Active Substance: PREGABALIN
     Indication: DIZZINESS

REACTIONS (10)
  - Somnolence [Unknown]
  - Weight increased [Unknown]
  - Fatigue [Unknown]
  - Fluid retention [Unknown]
  - Condition aggravated [Unknown]
  - Off label use [Unknown]
  - Disturbance in attention [Unknown]
  - Dizziness [Unknown]
  - Depression [Unknown]
  - Drug ineffective for unapproved indication [Unknown]

NARRATIVE: CASE EVENT DATE: 2019
